FAERS Safety Report 19542183 (Version 1)
Quarter: 2021Q3

REPORT INFORMATION
  Report Type: Spontaneous
  Country: US (occurrence: US)
  Receive Date: 20210714
  Receipt Date: 20210714
  Transmission Date: 20211014
  Serious: Yes (Hospitalization, Other)
  Sender: FDA-Public Use
  Company Number: US-ABBVIE-21K-163-3983724-00

PATIENT
  Age: 70 Year
  Sex: Female
  Weight: 62.65 kg

DRUGS (7)
  1. COENZYME Q10 [Concomitant]
     Active Substance: DIETARY SUPPLEMENT\UBIDECARENONE
     Indication: PRODUCT USED FOR UNKNOWN INDICATION
  2. SYNTHROID [Suspect]
     Active Substance: LEVOTHYROXINE SODIUM
     Indication: HYPOTHYROIDISM
     Dosage: DOSE VARIES FROM 75MG FOUR DAYS A WEEK AND 50MG THREE DAYS A WEEK
     Route: 048
     Dates: start: 2001
  3. CITRACAL [Concomitant]
     Active Substance: CALCIUM CITRATE
     Indication: PRODUCT USED FOR UNKNOWN INDICATION
  4. PFIZER?BIONTECH COVID?19 VACCINE [Suspect]
     Active Substance: TOZINAMERAN
     Indication: COVID-19 IMMUNISATION
     Dosage: INJECTION IN THE LEFT ARM MUSCLE
     Route: 030
     Dates: start: 20210630, end: 20210630
  5. VITAMIN D [Suspect]
     Active Substance: VITAMIN D NOS
     Indication: PRODUCT USED FOR UNKNOWN INDICATION
     Route: 065
     Dates: end: 202105
  6. VITAMIN B COMPLEX [Concomitant]
     Active Substance: CYANOCOBALAMIN\DEXPANTHENOL\NIACINAMIDE\PYRIDOXINE HYDROCHLORIDE\RIBOFLAVIN 5^-PHOSPHATE SODIUM\THIAMINE HYDROCHLORIDE\VITAMIN B COMPLEX
     Indication: PRODUCT USED FOR UNKNOWN INDICATION
  7. VITAMIN C [Concomitant]
     Active Substance: ASCORBIC ACID
     Indication: PRODUCT USED FOR UNKNOWN INDICATION

REACTIONS (13)
  - Labile hypertension [Not Recovered/Not Resolved]
  - Pain in extremity [Recovered/Resolved]
  - Blood pressure decreased [Unknown]
  - Blood cholesterol increased [Not Recovered/Not Resolved]
  - Osteoarthritis [Unknown]
  - Tremor [Unknown]
  - Feeling abnormal [Unknown]
  - Supraventricular tachycardia [Recovered/Resolved]
  - Osteoporosis [Not Recovered/Not Resolved]
  - Drug intolerance [Unknown]
  - Macular degeneration [Unknown]
  - Blood pressure increased [Unknown]
  - Spinal stenosis [Not Recovered/Not Resolved]

NARRATIVE: CASE EVENT DATE: 2006
